FAERS Safety Report 8489033-6 (Version None)
Quarter: 2012Q3

REPORT INFORMATION
  Report Type: 
  Country: None (occurrence: None)
  Receive Date: 20120705
  Receipt Date: 20120702
  Transmission Date: 20120928
  Serious: No
  Sender: FDA-Public Use
  Company Number: US-PFIZER INC-2012158148

PATIENT
  Sex: Male

DRUGS (1)
  1. CAMPTOSAR [Suspect]
     Indication: COLON CANCER
     Dosage: 340 MG, EVERY 2 WEEKS
     Dates: start: 20120206

REACTIONS (2)
  - DISEASE PROGRESSION [None]
  - COLON CANCER [None]
